FAERS Safety Report 16659422 (Version 2)
Quarter: 2019Q3

REPORT INFORMATION
  Report Type: Spontaneous
  Country: CA (occurrence: CA)
  Receive Date: 20190802
  Receipt Date: 20190930
  Transmission Date: 20191004
  Serious: Yes (Other)
  Sender: FDA-Public Use
  Company Number: CA-ROCHE-2369607

PATIENT

DRUGS (1)
  1. OCREVUS [Suspect]
     Active Substance: OCRELIZUMAB
     Indication: MULTIPLE SCLEROSIS
     Dosage: 1ST DOSE WAS SPLIT OVER TWO DATES IN FEB/MARCH 2019 (300 MG EACH DOSE), NEXT DOSE?600 MG
     Route: 065
     Dates: start: 201902

REACTIONS (1)
  - Herpes virus infection [Unknown]
